FAERS Safety Report 6181668-9 (Version None)
Quarter: 2009Q2

REPORT INFORMATION
  Report Type: 
  Country: None (occurrence: None)
  Receive Date: 20090506
  Receipt Date: 20090423
  Transmission Date: 20091009
  Serious: Yes (Other)
  Sender: FDA-Public Use
  Company Number: D0061483A

PATIENT
  Age: 73 Year
  Sex: Female

DRUGS (1)
  1. CEFUROXIME [Suspect]
     Indication: BREAST INFECTION
     Dosage: 500MG TWICE PER DAY
     Route: 048

REACTIONS (2)
  - HYPOAESTHESIA [None]
  - NEUROPATHY PERIPHERAL [None]
